FAERS Safety Report 5497721-9 (Version None)
Quarter: 2007Q4

REPORT INFORMATION
  Report Type: 
  Country: None (occurrence: None)
  Receive Date: 20071025
  Receipt Date: 20070213
  Transmission Date: 20080405
  Serious: No
  Sender: FDA-Public Use
  Company Number: A0639533A

PATIENT
  Age: 69 Year
  Sex: Female

DRUGS (13)
  1. ADVAIR DISKUS 100/50 [Suspect]
     Indication: CHRONIC OBSTRUCTIVE PULMONARY DISEASE
     Dosage: 1PUFF TWICE PER DAY
     Route: 055
     Dates: start: 20070131
  2. NEBULIZER [Concomitant]
  3. DIGOXIN [Concomitant]
  4. MICARDIS [Concomitant]
  5. THYROID TAB [Concomitant]
  6. VITAMIN CAP [Concomitant]
  7. VITAMINS [Concomitant]
  8. ALPRAZOLAM [Concomitant]
  9. ATROVENT [Concomitant]
  10. RESTORIL [Concomitant]
  11. FLU SHOT [Concomitant]
     Dates: start: 20061101
  12. OXYGEN THERAPY [Concomitant]
  13. SPIRIVA [Concomitant]

REACTIONS (4)
  - COUGH [None]
  - DYSPNOEA [None]
  - SECRETION DISCHARGE [None]
  - WHEEZING [None]
